FAERS Safety Report 12816330 (Version 1)
Quarter: 2016Q4

REPORT INFORMATION
  Report Type: Spontaneous
  Country: JP (occurrence: JP)
  Receive Date: 20161006
  Receipt Date: 20161006
  Transmission Date: 20170207
  Serious: No
  Sender: FDA-Public Use
  Company Number: JP-NOVEN PHARMACEUTICALS, INC.-JP2016000192

PATIENT

DRUGS (1)
  1. ESTRADIOL/NORETHISTERONE ACETATE [Suspect]
     Active Substance: ESTRADIOL\NORETHINDRONE ACETATE
     Indication: MENOPAUSAL SYMPTOMS
     Dosage: UNK UNK, 2/WK
     Route: 062
     Dates: start: 20160216, end: 20160328

REACTIONS (1)
  - Genital haemorrhage [Recovered/Resolved]

NARRATIVE: CASE EVENT DATE: 20160216
